FAERS Safety Report 8559562-5 (Version None)
Quarter: 2012Q3

REPORT INFORMATION
  Report Type: 
  Country: None (occurrence: None)
  Receive Date: 20120802
  Receipt Date: 20120725
  Transmission Date: 20120928
  Serious: Yes (Other)
  Sender: FDA-Public Use
  Company Number: JP-B.I. PHARMACEUTICALS,INC./RIDGEFIELD-2012-EU-03766GD

PATIENT
  Age: 63 Year
  Sex: Male

DRUGS (1)
  1. DIPYRIDAMOLE [Suspect]

REACTIONS (4)
  - ABDOMINAL PAIN UPPER [None]
  - BILE DUCT STONE [None]
  - PYREXIA [None]
  - CHOLANGITIS [None]
